FAERS Safety Report 7085815-6 (Version None)
Quarter: 2010Q4

REPORT INFORMATION
  Report Type: 
  Country: None (occurrence: None)
  Receive Date: 20101001
  Receipt Date: 20100810
  Transmission Date: 20110411
  Serious: No
  Sender: FDA-Public Use
  Company Number: 1000015605

PATIENT
  Age: 59 Year
  Sex: Female

DRUGS (6)
  1. BYSTOLIC [Suspect]
     Indication: HYPERTENSION
     Dosage: 10 MG (10 MG, 1 IN 1 D), ORAL
     Route: 048
     Dates: start: 20100201
  2. SYNTHROID [Concomitant]
  3. PROZAC [Concomitant]
  4. ZANTAC [Concomitant]
  5. ATIVAN [Concomitant]
  6. VESICARE [Concomitant]

REACTIONS (1)
  - PERIPHERAL COLDNESS [None]
